FAERS Safety Report 18112666 (Version 1)
Quarter: 2020Q3

REPORT INFORMATION
  Report Type: Spontaneous
  Country: US (occurrence: US)
  Receive Date: 20200804
  Receipt Date: 20200804
  Transmission Date: 20201103
  Serious: Yes (Death)
  Sender: FDA-Public Use
  Company Number: None

PATIENT
  Age: 68 Year
  Sex: Male

DRUGS (12)
  1. MARINOL 2.5MG [Concomitant]
  2. FUROSEMIDE 20MG [Concomitant]
     Active Substance: FUROSEMIDE
  3. ZOFRAN [Concomitant]
     Active Substance: ONDANSETRON HYDROCHLORIDE
  4. RANITIDINE. [Concomitant]
     Active Substance: RANITIDINE
  5. CLOPIDOGREL [Concomitant]
     Active Substance: CLOPIDOGREL BISULFATE
  6. OXYCODONE 30MG [Concomitant]
     Active Substance: OXYCODONE
  7. DIAZEPAM 10MG [Concomitant]
     Active Substance: DIAZEPAM
  8. SERTRALINE 50MG [Concomitant]
     Active Substance: SERTRALINE HYDROCHLORIDE
  9. SPIRONOLACTONE 25MG [Concomitant]
     Active Substance: SPIRONOLACTONE
  10. CAPECITABINE. [Suspect]
     Active Substance: CAPECITABINE
     Indication: CHOLANGIOCARCINOMA
     Route: 048
     Dates: start: 20191126
  11. LACTULOSE 10MG/15ML [Concomitant]
  12. LEVOTHYROXINE 0.025MG [Concomitant]

REACTIONS (1)
  - Death [None]

NARRATIVE: CASE EVENT DATE: 20200729
